FAERS Safety Report 8817149 (Version 1)
Quarter: 2012Q4

REPORT INFORMATION
  Report Type: Spontaneous
  Country: US (occurrence: None)
  Receive Date: 20121003
  Receipt Date: 20121003
  Transmission Date: 20130627
  Serious: Yes (Life-Threatening)
  Sender: FDA-Public Use
  Company Number: None

PATIENT
  Age: 58 Year
  Sex: Male
  Weight: 106.8 kg

DRUGS (1)
  1. ISONIAZID [Suspect]
     Route: 048
     Dates: start: 20120201, end: 20120402

REACTIONS (2)
  - Renal impairment [None]
  - Hepatic enzyme abnormal [None]
